FAERS Safety Report 18389267 (Version 1)
Quarter: 2020Q4

REPORT INFORMATION
  Report Type: Spontaneous
  Country: US (occurrence: US)
  Receive Date: 20201015
  Receipt Date: 20201015
  Transmission Date: 20210114
  Serious: Yes (Other)
  Sender: FDA-Public Use
  Company Number: US-AMERICAN REGENT INC-2020002088

PATIENT
  Age: 2 Year
  Sex: Female
  Weight: 11 kg

DRUGS (11)
  1. ALBUTEROL                          /00139501/ [Suspect]
     Active Substance: ALBUTEROL
     Indication: STATUS ASTHMATICUS
     Dosage: UNK, NEBULIZATION (IN ER)
  2. TERBUTALINE [Suspect]
     Active Substance: TERBUTALINE
     Indication: STATUS ASTHMATICUS
     Dosage: UNK
  3. MAGNESIUM SULFATE. [Suspect]
     Active Substance: MAGNESIUM SULFATE
     Indication: STATUS ASTHMATICUS
     Dosage: UNK
  4. METHYLPREDNISOLONE. [Suspect]
     Active Substance: METHYLPREDNISOLONE
     Indication: STATUS ASTHMATICUS
     Dosage: UNK
     Route: 042
  5. IPRATROPIUM BROMIDE. [Suspect]
     Active Substance: IPRATROPIUM BROMIDE
     Indication: STATUS ASTHMATICUS
     Dosage: UNK
     Route: 065
  6. KETAMINE [Concomitant]
     Active Substance: KETAMINE
     Indication: SEDATION
     Dosage: UNK
  7. FENTANYL. [Concomitant]
     Active Substance: FENTANYL
     Indication: SEDATION
     Dosage: UNK
  8. MIDAZOLAM. [Concomitant]
     Active Substance: MIDAZOLAM
     Indication: SEDATION
     Dosage: UNK
  9. ALBUTEROL                          /00139501/ [Suspect]
     Active Substance: ALBUTEROL
     Dosage: UNK, CONTINUOUS (IN PICU)
  10. VECURONIUM [Concomitant]
     Active Substance: VECURONIUM BROMIDE
     Indication: PARALYSIS
     Dosage: UNK
  11. AMINOPHYLLINE INJECTION, USP (3810-25) [Suspect]
     Active Substance: AMINOPHYLLINE
     Indication: STATUS ASTHMATICUS
     Dosage: UNK

REACTIONS (2)
  - Drug ineffective [Recovered/Resolved]
  - Status asthmaticus [Recovered/Resolved]
